FAERS Safety Report 7356490-8 (Version None)
Quarter: 2011Q1

REPORT INFORMATION
  Report Type: 
  Country: None (occurrence: None)
  Receive Date: 20110316
  Receipt Date: 20110302
  Transmission Date: 20110831
  Serious: Yes (Hospitalization)
  Sender: FDA-Public Use
  Company Number: PHHY2011JP17824

PATIENT
  Sex: Male

DRUGS (26)
  1. CYCLOSPORINE [Suspect]
     Dosage: 425 MG, UNK
     Route: 048
     Dates: start: 20021118, end: 20021118
  2. CYCLOSPORINE [Suspect]
     Dosage: 250 MG, UNK
     Route: 048
     Dates: start: 20021201, end: 20021204
  3. CYCLOSPORINE [Suspect]
     Dosage: 225 MG, UNK
     Route: 048
     Dates: start: 20021205, end: 20021205
  4. CELLCEPT [Suspect]
     Indication: HEART TRANSPLANT
     Dosage: UNK
     Route: 048
     Dates: start: 20021114, end: 20110131
  5. CYCLOSPORINE [Suspect]
     Dosage: 225 MG, UNK
     Route: 048
     Dates: start: 20021115, end: 20021115
  6. CYCLOSPORINE [Suspect]
     Dosage: 225 MG, UNK
     Route: 048
     Dates: start: 20021219, end: 20021219
  7. CYCLOSPORINE [Suspect]
     Dosage: 250 MG, UNK
     Route: 048
     Dates: start: 20021220, end: 20030804
  8. CYCLOSPORINE [Suspect]
     Dosage: 125 MG, UNK
     Route: 048
     Dates: start: 20080314, end: 20101028
  9. CYCLOSPORINE [Suspect]
     Dosage: 150 MG, UNK
     Route: 048
     Dates: start: 20101029
  10. CERTICAN [Suspect]
     Indication: PROPHYLAXIS AGAINST TRANSPLANT REJECTION
     Dosage: UNK
     Route: 048
     Dates: start: 20070319, end: 20110131
  11. PREDONINE [Suspect]
     Indication: HEART TRANSPLANT
     Dosage: UNK
     Route: 048
     Dates: start: 20021114, end: 20110131
  12. CYCLOSPORINE [Suspect]
     Dosage: 450 MG, UNK
     Route: 048
     Dates: start: 20021119, end: 20021121
  13. CYCLOSPORINE [Suspect]
     Dosage: 425 MG, UNK
     Route: 048
     Dates: start: 20021122, end: 20021122
  14. CYCLOSPORINE [Suspect]
     Dosage: 375 MG, UNK
     Route: 048
     Dates: start: 20021123, end: 20021123
  15. CYCLOSPORINE [Suspect]
     Dosage: 300 MG, UNK
     Route: 048
     Dates: start: 20021125, end: 20021130
  16. CYCLOSPORINE [Suspect]
     Dosage: 200 MG, UNK
     Route: 048
     Dates: start: 20031024, end: 20040207
  17. CYCLOSPORINE [Suspect]
     Indication: HEART TRANSPLANT
     Dosage: 200 MG, UNK
     Route: 048
     Dates: start: 20021114, end: 20021114
  18. CYCLOSPORINE [Suspect]
     Dosage: 220 MG, UNK
     Route: 048
     Dates: start: 20021207, end: 20021218
  19. CYCLOSPORINE [Suspect]
     Dosage: 175 MG, UNK
     Route: 048
     Dates: start: 20040208, end: 20080117
  20. CERTICAN [Suspect]
     Indication: HEART TRANSPLANT
  21. CYCLOSPORINE [Suspect]
     Dosage: 250 MG, UNK
     Route: 048
     Dates: start: 20021116, end: 20021116
  22. CYCLOSPORINE [Suspect]
     Dosage: 350 MG, UNK
     Route: 048
     Dates: start: 20021117, end: 20021117
  23. CYCLOSPORINE [Suspect]
     Dosage: 325 MG, UNK
     Route: 048
     Dates: start: 20021124, end: 20021124
  24. CYCLOSPORINE [Suspect]
     Dosage: 210 MG, UNK
     Route: 048
     Dates: start: 20021206, end: 20021206
  25. CYCLOSPORINE [Suspect]
     Dosage: 225 MG, UNK
     Route: 048
     Dates: start: 20030805, end: 20031023
  26. CYCLOSPORINE [Suspect]
     Dosage: 150 MG, UNK
     Route: 048
     Dates: start: 20080118, end: 20080313

REACTIONS (4)
  - CAROTID INTIMA-MEDIA THICKNESS INCREASED [None]
  - CHOLECYSTITIS [None]
  - PNEUMONIA [None]
  - CHOLELITHIASIS [None]
